FAERS Safety Report 6035045-1 (Version None)
Quarter: 2009Q1

REPORT INFORMATION
  Report Type: 
  Country: None (occurrence: None)
  Receive Date: 20090108
  Receipt Date: 20081229
  Transmission Date: 20090719
  Serious: Yes (Hospitalization, Other)
  Sender: FDA-Public Use
  Company Number: 2008PD0303

PATIENT
  Age: 25 Year
  Sex: Female
  Weight: 109.7705 kg

DRUGS (2)
  1. PRENATE DHA [Suspect]
     Indication: PREGNANCY
     Dosage: 1 SOFTGEL, DAILY, PO
     Route: 048
     Dates: start: 20081209, end: 20081214
  2. PRENATE DHA [Suspect]
     Indication: VITAMIN SUPPLEMENTATION
     Dosage: 1 SOFTGEL, DAILY, PO
     Route: 048
     Dates: start: 20081209, end: 20081214

REACTIONS (2)
  - ABORTION SPONTANEOUS [None]
  - DRUG EXPOSURE DURING PREGNANCY [None]
